FAERS Safety Report 13076813 (Version 1)
Quarter: 2016Q4

REPORT INFORMATION
  Report Type: Spontaneous
  Country: US (occurrence: US)
  Receive Date: 20161230
  Receipt Date: 20161230
  Transmission Date: 20170207
  Serious: Yes (Life-Threatening, Hospitalization)
  Sender: FDA-Public Use
  Company Number: None

PATIENT
  Age: 76 Year
  Sex: Male
  Weight: 84.6 kg

DRUGS (3)
  1. PROTONIX [Suspect]
     Active Substance: PANTOPRAZOLE SODIUM
     Indication: OEDEMA
     Route: 048
     Dates: start: 20161101, end: 20161212
  2. PROTONIX [Suspect]
     Active Substance: PANTOPRAZOLE SODIUM
     Indication: GASTROOESOPHAGEAL REFLUX DISEASE
     Route: 048
     Dates: start: 20161101, end: 20161212
  3. GENERIC PLAVIX [Suspect]
     Active Substance: CLOPIDOGREL BISULFATE
     Indication: ANTICOAGULANT THERAPY
     Route: 048
     Dates: start: 20160501, end: 20161212

REACTIONS (5)
  - Gastrointestinal haemorrhage [None]
  - Fatigue [None]
  - Blood count abnormal [None]
  - Gait disturbance [None]
  - Dyspnoea [None]

NARRATIVE: CASE EVENT DATE: 20161206
